FAERS Safety Report 8868835 (Version 1)
Quarter: 2012Q4

REPORT INFORMATION
  Report Type: 
  Country: US (occurrence: US)
  Receive Date: 20121024
  Receipt Date: 20121024
  Transmission Date: 20130627
  Serious: Yes (Other)
  Sender: FDA-Public Use
  Company Number: US-ASTRAZENECA-2012SE79298

PATIENT
  Age: 66 Year
  Sex: Female

DRUGS (2)
  1. NEXIUM [Suspect]
  2. STEROID MEDICATION [Suspect]
     Route: 065

REACTIONS (6)
  - Dysplasia [Unknown]
  - Cataract [Unknown]
  - Pneumonia [Unknown]
  - Adverse event [Unknown]
  - Multiple sclerosis [Unknown]
  - Barrett^s oesophagus [Unknown]
